FAERS Safety Report 18839341 (Version 2)
Quarter: 2021Q1

REPORT INFORMATION
  Report Type: Spontaneous
  Country: IN (occurrence: IN)
  Receive Date: 20210203
  Receipt Date: 20210312
  Transmission Date: 20210419
  Serious: Yes (Other)
  Sender: FDA-Public Use
  Company Number: IN-PFIZER INC-2020366096

PATIENT
  Age: 46 Year
  Sex: Female

DRUGS (2)
  1. PALBACE [Suspect]
     Active Substance: PALBOCICLIB
     Indication: BREAST CANCER METASTATIC
     Dosage: 125 MG, 1X/DAY
     Route: 048
     Dates: start: 20200806
  2. FEMARA [Concomitant]
     Active Substance: LETROZOLE

REACTIONS (5)
  - Hyperthyroidism [Unknown]
  - Haemoglobin decreased [Unknown]
  - Dengue fever [Unknown]
  - Cough [Unknown]
  - White blood cell count decreased [Unknown]

NARRATIVE: CASE EVENT DATE: 202011
